FAERS Safety Report 5828026-1 (Version None)
Quarter: 2008Q3

REPORT INFORMATION
  Report Type: 
  Country: None (occurrence: None)
  Receive Date: 20080730
  Receipt Date: 20070710
  Transmission Date: 20090109
  Serious: No
  Sender: FDA-Public Use
  Company Number: A0662838A

PATIENT
  Age: 82 Year
  Sex: Female

DRUGS (2)
  1. ZANTAC [Suspect]
     Indication: GASTRIC ULCER
     Route: 048
     Dates: start: 20050101
  2. PREMARIN [Concomitant]

REACTIONS (1)
  - URTICARIA [None]
